FAERS Safety Report 12873848 (Version 1)
Quarter: 2016Q4

REPORT INFORMATION
  Report Type: Spontaneous
  Country: US (occurrence: US)
  Receive Date: 20161021
  Receipt Date: 20161021
  Transmission Date: 20170207
  Serious: No
  Sender: FDA-Public Use
  Company Number: US-ALLERGAN-1656270US

PATIENT
  Sex: Male
  Weight: 52.61 kg

DRUGS (1)
  1. ZENPEP [Suspect]
     Active Substance: PANCRELIPASE AMYLASE\PANCRELIPASE LIPASE\PANCRELIPASE PROTEASE
     Indication: ENZYME SUPPLEMENTATION
     Dosage: 5 UNITS, QD
     Route: 048
     Dates: start: 20150501

REACTIONS (2)
  - Dyspnoea [Unknown]
  - Fatigue [Unknown]
